FAERS Safety Report 8576702-2 (Version None)
Quarter: 2012Q3

REPORT INFORMATION
  Report Type: 
  Country: None (occurrence: None)
  Receive Date: 20120807
  Receipt Date: 20120730
  Transmission Date: 20120928
  Serious: Yes (Death)
  Sender: FDA-Public Use
  Company Number: US-GLAXOSMITHKLINE-A0988351A

PATIENT
  Age: 54 Year
  Sex: Female

DRUGS (6)
  1. KEPPRA [Concomitant]
  2. PROCHLORPERAZINE [Concomitant]
  3. XANAX [Concomitant]
  4. DILAUDID [Concomitant]
  5. TYKERB [Suspect]
     Indication: BREAST CANCER
     Dosage: 1250MG PER DAY
     Route: 048
     Dates: start: 20100913
  6. MORPHINE SULFATE [Concomitant]

REACTIONS (1)
  - DEATH [None]
